FAERS Safety Report 10548472 (Version 1)
Quarter: 2014Q4

REPORT INFORMATION
  Report Type: Spontaneous
  Country: US (occurrence: None)
  Receive Date: 20141024
  Receipt Date: 20141024
  Transmission Date: 20150529
  Serious: Yes (Other)
  Sender: FDA-Public Use
  Company Number: ADR-2014-01962

PATIENT
  Age: 50 Year
  Sex: Female

DRUGS (3)
  1. BACLOFEN. [Suspect]
     Active Substance: BACLOFEN
     Indication: POST LAMINECTOMY SYNDROME
  2. DILAUDID [Suspect]
     Active Substance: HYDROMORPHONE HYDROCHLORIDE
  3. CLONIDINE. [Suspect]
     Active Substance: CLONIDINE

REACTIONS (4)
  - Malaise [None]
  - Spinal disorder [None]
  - Respiratory disorder [None]
  - Gait disturbance [None]

NARRATIVE: CASE EVENT DATE: 20141015
